FAERS Safety Report 6598068-X (Version None)
Quarter: 2010Q1

REPORT INFORMATION
  Report Type: 
  Country: None (occurrence: None)
  Receive Date: 20100216
  Receipt Date: 20100208
  Transmission Date: 20100710
  Serious: Yes (Hospitalization)
  Sender: FDA-Public Use
  Company Number: 100209-0000169

PATIENT
  Age: 38 Year
  Sex: Female

DRUGS (4)
  1. TRANXENE [Suspect]
     Indication: DRUG USE FOR UNKNOWN INDICATION
     Dosage: 150 MG, 1X
     Dates: start: 20091201, end: 20100115
  2. TRANXENE [Suspect]
     Indication: DRUG USE FOR UNKNOWN INDICATION
     Dosage: 150 MG, 1X
     Dates: start: 20100116, end: 20100116
  3. MILNACIPRAN [Suspect]
     Indication: DEPRESSION
     Dosage: 1400 MG, 1X, 50 MG, BID, PO
     Route: 048
     Dates: start: 20091201, end: 20100115
  4. MILNACIPRAN [Suspect]
     Indication: DEPRESSION
     Dosage: 1400 MG, 1X, 50 MG, BID, PO
     Route: 048
     Dates: start: 20100116, end: 20100116

REACTIONS (3)
  - DEPRESSION [None]
  - OVERDOSE [None]
  - SUICIDE ATTEMPT [None]
